FAERS Safety Report 10302790 (Version 2)
Quarter: 2014Q3

REPORT INFORMATION
  Report Type: Spontaneous
  Country: US (occurrence: US)
  Receive Date: 20140714
  Receipt Date: 20140814
  Transmission Date: 20150326
  Serious: Yes (Death)
  Sender: FDA-Public Use
  Company Number: US-GLAXOSMITHKLINE-A1080969A

PATIENT
  Age: 71 Year
  Sex: Female

DRUGS (12)
  1. CARBIDOPA. [Concomitant]
     Active Substance: CARBIDOPA
  2. PROCHLORPERAZINE. [Concomitant]
     Active Substance: PROCHLORPERAZINE
  3. SENOKOT-S [Concomitant]
     Active Substance: DOCUSATE SODIUM\SENNOSIDES
  4. LEVODOPA [Concomitant]
     Active Substance: LEVODOPA
  5. K-TAB [Concomitant]
     Active Substance: POTASSIUM CHLORIDE
  6. SERTRALINE [Concomitant]
     Active Substance: SERTRALINE HYDROCHLORIDE
  7. VOTRIENT [Suspect]
     Active Substance: PAZOPANIB HYDROCHLORIDE
     Indication: RENAL CANCER
     Dosage: 600MG PER DAY
     Route: 065
     Dates: start: 20130625
  8. ATORVASTATIN [Concomitant]
     Active Substance: ATORVASTATIN
  9. HYDROCODONE ACETAMINOPHEN [Concomitant]
     Active Substance: ACETAMINOPHEN\HYDROCODONE BITARTRATE
  10. TEMAZEPAM. [Concomitant]
     Active Substance: TEMAZEPAM
  11. ROPINIROLE. [Concomitant]
     Active Substance: ROPINIROLE
  12. COMPAZINE [Concomitant]
     Active Substance: PROCHLORPERAZINE MALEATE

REACTIONS (29)
  - Death [Fatal]
  - Rhonchi [Unknown]
  - Lymphadenopathy [Unknown]
  - Dizziness [Unknown]
  - Abdominal neoplasm [Unknown]
  - Breath sounds abnormal [Unknown]
  - Pleural effusion [Unknown]
  - Intestinal mucosal hypertrophy [Unknown]
  - Asthenia [Unknown]
  - Thrombocytosis [Unknown]
  - Lymphadenopathy mediastinal [Unknown]
  - Metastases to the mediastinum [Unknown]
  - Metastases to retroperitoneum [Unknown]
  - Fatigue [Unknown]
  - Pulmonary mass [Unknown]
  - Decreased appetite [Unknown]
  - Cough [Unknown]
  - Metastatic lymphoma [Unknown]
  - Metastases to bone [Unknown]
  - Metastatic renal cell carcinoma [Unknown]
  - Malaise [Unknown]
  - Abdominal distension [Unknown]
  - Disease progression [Unknown]
  - Dyspnoea exertional [Unknown]
  - Metastases to liver [Unknown]
  - Metastases to lymph nodes [Unknown]
  - Conjunctival pallor [Unknown]
  - Oedema peripheral [Unknown]
  - Microcytic anaemia [Unknown]

NARRATIVE: CASE EVENT DATE: 20140602
